FAERS Safety Report 5805164-0 (Version None)
Quarter: 2008Q3

REPORT INFORMATION
  Report Type: 
  Country: None (occurrence: None)
  Receive Date: 20080709
  Receipt Date: 20080704
  Transmission Date: 20090109
  Serious: Yes (Disabling)
  Sender: FDA-Public Use
  Company Number: FR-MERCK-0807FRA00023

PATIENT
  Age: 74 Year
  Sex: Female

DRUGS (2)
  1. FOSAMAX PLUS D [Suspect]
     Indication: OSTEOPOROSIS
     Route: 048
     Dates: start: 20080101
  2. TRIMETAZIDINE HYDROCHLORIDE [Concomitant]
     Route: 048

REACTIONS (1)
  - OSTEONECROSIS [None]
